FAERS Safety Report 9228469 (Version 1)
Quarter: 2013Q1

REPORT INFORMATION
  Report Type: Spontaneous
  Country: US (occurrence: None)
  Receive Date: 20121010
  Receipt Date: 20121010
  Transmission Date: 20140127
  Serious: Yes (Death)
  Sender: FDA-Public Use
  Company Number: 2011POI057500022

PATIENT
  Age: 17 Year
  Sex: Female
  Weight: 54.89 kg

DRUGS (3)
  1. ROXICODONE [Suspect]
     Dates: end: 20110308
  2. HYDROCODONE [Suspect]
     Dates: end: 20110308
  3. MEPROBAMATE [Suspect]
     Dates: end: 20110308

REACTIONS (2)
  - Accidental overdose [None]
  - Drug abuse [None]
